FAERS Safety Report 4342572-1 (Version None)
Quarter: 2004Q1

REPORT INFORMATION
  Report Type: 
  Country: None (occurrence: None)
  Receive Date: 20040213
  Receipt Date: 20031124
  Transmission Date: 20041129
  Serious: Yes (Hospitalization)
  Sender: FDA-Public Use
  Company Number: 353039

PATIENT
  Age: 50 Year
  Sex: Female
  Weight: 62.1 kg

DRUGS (2)
  1. PEGASYS [Suspect]
     Dosage: SUBCUTANEOUS
     Route: 058
     Dates: start: 20030515, end: 20030915
  2. COPEGUS [Suspect]
     Dosage: ORAL
     Route: 048
     Dates: start: 20030515, end: 20030915

REACTIONS (3)
  - ALOPECIA [None]
  - DISEASE RECURRENCE [None]
  - PANCREATITIS [None]
